FAERS Safety Report 12663958 (Version 1)
Quarter: 2016Q3

REPORT INFORMATION
  Report Type: Spontaneous
  Country: PE (occurrence: PE)
  Receive Date: 20160818
  Receipt Date: 20160818
  Transmission Date: 20161109
  Serious: Yes (Life-Threatening)
  Sender: FDA-Public Use
  Company Number: PE-PFIZER INC-2016390405

PATIENT
  Age: 69 Year
  Sex: Male

DRUGS (3)
  1. KEPPRA [Concomitant]
     Active Substance: LEVETIRACETAM
  2. TEGRETOL CR [Concomitant]
     Active Substance: CARBAMAZEPINE
  3. LYRICA [Suspect]
     Active Substance: PREGABALIN
     Indication: PAIN
     Dosage: 75 MG, UNK

REACTIONS (2)
  - Cerebrovascular accident [Unknown]
  - Somnolence [Unknown]
